FAERS Safety Report 5369028-1 (Version None)
Quarter: 2007Q2

REPORT INFORMATION
  Report Type: 
  Country: None (occurrence: None)
  Receive Date: 20070625
  Receipt Date: 20061114
  Transmission Date: 20071010
  Serious: No
  Sender: FDA-Public Use
  Company Number: US-ASTRAZENECA-2006UW24225

PATIENT
  Age: 67 Year
  Sex: Female
  Weight: 61.7 kg

DRUGS (2)
  1. CRESTOR [Suspect]
     Indication: HYPERCHOLESTEROLAEMIA
     Route: 048
     Dates: start: 20060901
  2. COZAAR [Concomitant]
     Route: 048

REACTIONS (1)
  - ALOPECIA [None]
